FAERS Safety Report 25272733 (Version 1)
Quarter: 2025Q2

REPORT INFORMATION
  Report Type: Spontaneous
  Country: US (occurrence: US)
  Receive Date: 20250506
  Receipt Date: 20250506
  Transmission Date: 20250717
  Serious: No
  Sender: MYLAN
  Company Number: US-MYLANLABS-2025M1036028

PATIENT
  Age: 54 Year
  Sex: Female

DRUGS (1)
  1. ESTRADIOL TRANSDERMAL SYSTEM [Suspect]
     Active Substance: ESTRADIOL
     Indication: Osteoporosis
     Dosage: 0.025 MILLIGRAM, QD (PER DAY, PATCH TWICE WEEKLY)
     Dates: start: 20250415

REACTIONS (6)
  - Muscle spasms [Unknown]
  - Poor quality sleep [Unknown]
  - Hot flush [Unknown]
  - Product dose omission issue [Unknown]
  - Product adhesion issue [Unknown]
  - Product physical issue [Unknown]

NARRATIVE: CASE EVENT DATE: 20250415
